FAERS Safety Report 14798063 (Version 2)
Quarter: 2018Q3

REPORT INFORMATION
  Report Type: Spontaneous
  Country: US (occurrence: US)
  Receive Date: 20180424
  Receipt Date: 20180706
  Transmission Date: 20181010
  Serious: Yes (Hospitalization, Other)
  Sender: FDA-Public Use
  Company Number: US-UCBSA-2018017181

PATIENT
  Sex: Male
  Weight: 81.6 kg

DRUGS (6)
  1. REMICADE [Suspect]
     Active Substance: INFLIXIMAB
     Indication: CROHN^S DISEASE
     Dosage: UNKNOWN DOSE
  2. HUMIRA [Suspect]
     Active Substance: ADALIMUMAB
     Indication: CROHN^S DISEASE
     Dosage: 40 MG, EV 2 WEEKS(QOW)
     Route: 058
     Dates: start: 20130312
  3. HUMIRA [Suspect]
     Active Substance: ADALIMUMAB
     Dosage: 40 MG, EV 2 WEEKS(QOW)
     Route: 058
     Dates: start: 201711
  4. HUMIRA [Suspect]
     Active Substance: ADALIMUMAB
     Dosage: 40 MG, EV 2 WEEKS(QOW)
     Route: 058
     Dates: start: 2018
  5. CIMZIA [Suspect]
     Active Substance: CERTOLIZUMAB PEGOL
     Indication: CROHN^S DISEASE
     Dosage: UNKNOWN DOSE
  6. HUMIRA [Suspect]
     Active Substance: ADALIMUMAB
     Dosage: 40 MG, EV 2 WEEKS(QOW)
     Route: 058
     Dates: start: 2015

REACTIONS (14)
  - Hepatic mass [Not Recovered/Not Resolved]
  - Drug ineffective [Unknown]
  - Umbilical hernia [Not Recovered/Not Resolved]
  - Femur fracture [Recovered/Resolved]
  - Adverse drug reaction [Unknown]
  - Psoriasis [Not Recovered/Not Resolved]
  - Fall [Recovered/Resolved]
  - Hepatic cirrhosis [Unknown]
  - Peripheral swelling [Not Recovered/Not Resolved]
  - Ascites [Not Recovered/Not Resolved]
  - Hip fracture [Recovered/Resolved]
  - Gallbladder enlargement [Not Recovered/Not Resolved]
  - Abdominal distension [Unknown]
  - Oedema peripheral [Not Recovered/Not Resolved]

NARRATIVE: CASE EVENT DATE: 2016
